FAERS Safety Report 8490402-9 (Version None)
Quarter: 2012Q3

REPORT INFORMATION
  Report Type: 
  Country: None (occurrence: None)
  Receive Date: 20120705
  Receipt Date: 20120627
  Transmission Date: 20120928
  Serious: Yes (Life-Threatening, Hospitalization, Disabling)
  Sender: FDA-Public Use
  Company Number: NZ-ROCHE-1080043

PATIENT
  Sex: Female

DRUGS (6)
  1. METOPROLOL TARTRATE [Concomitant]
     Dosage: 65,5 MG (32, 75 MG, 2 IN 1 DAY)
  2. DILTIAZEM HYDROCHOLORIDE [Concomitant]
  3. ASPIRIN [Concomitant]
  4. ATORVASTATIN [Concomitant]
  5. ALTEPLASE [Suspect]
     Indication: CEREBROVASCULAR ACCIDENT
     Dates: start: 20120613, end: 20120613
  6. CAPTOPRIL [Concomitant]
     Dosage: 25 MG 2 IN 1 DAY

REACTIONS (3)
  - HAEMORRHAGE INTRACRANIAL [None]
  - HEMIPARESIS [None]
  - CEREBROVASCULAR ACCIDENT [None]
